FAERS Safety Report 15804464 (Version 2)
Quarter: 2019Q1

REPORT INFORMATION
  Report Type: Spontaneous
  Country: GB (occurrence: GB)
  Receive Date: 20190109
  Receipt Date: 20190115
  Transmission Date: 20190417
  Serious: Yes (Disabling)
  Sender: FDA-Public Use
  Company Number: GB-LUNDBECK-DKLU2059048

PATIENT
  Age: 70 Year
  Sex: Female

DRUGS (2)
  1. CLOBAZAM. [Suspect]
     Active Substance: CLOBAZAM
     Indication: CREUTZFELDT-JAKOB DISEASE
     Route: 048
     Dates: start: 20181206
  2. PHENYTOIN SODIUM. [Interacting]
     Active Substance: PHENYTOIN SODIUM
     Indication: CREUTZFELDT-JAKOB DISEASE
     Route: 042

REACTIONS (2)
  - Anticonvulsant drug level decreased [Unknown]
  - Potentiating drug interaction [Unknown]
